FAERS Safety Report 22595385 (Version 8)
Quarter: 2024Q3

REPORT INFORMATION
  Report Type: Spontaneous
  Country: US (occurrence: US)
  Receive Date: 20230613
  Receipt Date: 20240704
  Transmission Date: 20241016
  Serious: No
  Sender: SANOFI AVENTIS
  Company Number: US-SA-SAC20230612000382

PATIENT
  Age: 51 Year
  Sex: Female

DRUGS (1)
  1. DUPIXENT [Suspect]
     Active Substance: DUPILUMAB
     Indication: Dermatitis atopic
     Dosage: 300 MG, QOW
     Route: 058
     Dates: start: 202303

REACTIONS (11)
  - Eye pain [Unknown]
  - Visual impairment [Unknown]
  - Pain in extremity [Unknown]
  - Pruritus [Unknown]
  - Vision blurred [Unknown]
  - Eye swelling [Unknown]
  - Muscle spasms [Unknown]
  - Injection site bruising [Unknown]
  - Injection site pain [Unknown]
  - Injection site erythema [Unknown]
  - Intentional dose omission [Unknown]

NARRATIVE: CASE EVENT DATE: 20230101
